FAERS Safety Report 5900826-9 (Version None)
Quarter: 2008Q3

REPORT INFORMATION
  Report Type: 
  Country: None (occurrence: None)
  Receive Date: 20080929
  Receipt Date: 20080828
  Transmission Date: 20090109
  Serious: Yes (Hospitalization)
  Sender: FDA-Public Use
  Company Number: GB-RANBAXY-2008RR-17636

PATIENT

DRUGS (1)
  1. ACETAMINOPHEN [Suspect]
     Indication: NASOPHARYNGITIS
     Dosage: 500 MG, UNK

REACTIONS (8)
  - CONDITION AGGRAVATED [None]
  - EPILEPSY [None]
  - METABOLIC ACIDOSIS [None]
  - METABOLIC DISORDER [None]
  - PYREXIA [None]
  - RENAL IMPAIRMENT [None]
  - TRANSAMINASES INCREASED [None]
  - VOMITING [None]
